FAERS Safety Report 9765222 (Version 1)
Quarter: 2013Q4

REPORT INFORMATION
  Report Type: Spontaneous
  Country: US (occurrence: US)
  Receive Date: 20131217
  Receipt Date: 20131217
  Transmission Date: 20140711
  Serious: Yes (Hospitalization)
  Sender: FDA-Public Use
  Company Number: US-GLAXOSMITHKLINE-A1038200A

PATIENT
  Age: 61 Year
  Sex: Male

DRUGS (7)
  1. SORIATANE [Suspect]
     Indication: PSORIASIS
     Route: 048
  2. NEXIUM [Concomitant]
  3. TRAZODONE [Concomitant]
  4. ZOLOFT [Concomitant]
  5. RISPERDAL [Concomitant]
  6. COMBIVENT [Concomitant]
  7. ZYRTEC [Concomitant]

REACTIONS (1)
  - Oedema peripheral [Unknown]
